FAERS Safety Report 4892003-8 (Version None)
Quarter: 2006Q1

REPORT INFORMATION
  Report Type: 
  Country: None (occurrence: None)
  Receive Date: 20060123
  Receipt Date: 20060110
  Transmission Date: 20060701
  Serious: Yes (Death)
  Sender: FDA-Public Use
  Company Number: 2006007906

PATIENT
  Age: 9 Year
  Sex: Male

DRUGS (3)
  1. VFEND [Suspect]
     Indication: FUNGAL INFECTION
     Dosage: 200 MG (200 MG, 1 IN 1 D), INTRAVENOUS
     Route: 042
  2. VFEND [Suspect]
     Indication: FUNGAL INFECTION
     Dosage: 200 MG (200 MG, 1 IN 1 D), ORAL
     Route: 048
  3. AMPHOTERICIN B [Concomitant]

REACTIONS (1)
  - VISION BLURRED [None]
